FAERS Safety Report 6076150-3 (Version None)
Quarter: 2009Q1

REPORT INFORMATION
  Report Type: 
  Country: None (occurrence: None)
  Receive Date: 20090212
  Receipt Date: 20090210
  Transmission Date: 20090719
  Serious: No
  Sender: FDA-Public Use
  Company Number: US-B.I. PHARMACEUTICALS,INC./RIDGEFIELD-2008-BP-19016BP

PATIENT
  Age: 52 Year
  Sex: Male

DRUGS (5)
  1. FLOMAX [Suspect]
     Dates: start: 20061101
  2. NASACORT [Concomitant]
  3. TETRACYCLINE [Concomitant]
  4. ASPIRIN [Concomitant]
  5. ZANTAC [Concomitant]

REACTIONS (1)
  - HEPATIC ENZYME INCREASED [None]
